FAERS Safety Report 13842040 (Version 1)
Quarter: 2017Q3

REPORT INFORMATION
  Report Type: Report from Study
  Country: US (occurrence: US)
  Receive Date: 20170807
  Receipt Date: 20170807
  Transmission Date: 20171127
  Serious: No
  Sender: FDA-Public Use
  Company Number: US-AMGEN-USASL2017074193

PATIENT
  Age: 74 Year
  Sex: Female

DRUGS (2)
  1. NPLATE [Suspect]
     Active Substance: ROMIPLOSTIM
     Indication: IMMUNE THROMBOCYTOPENIC PURPURA
     Dosage: 155 MUG, QWK
     Route: 065
     Dates: start: 2014
  2. NPLATE [Suspect]
     Active Substance: ROMIPLOSTIM
     Dosage: 155 MCG, 1 TO 3 WEEKS
     Route: 065
     Dates: start: 2014

REACTIONS (3)
  - Arthralgia [Recovering/Resolving]
  - Arthropod bite [Unknown]
  - Asthenia [Not Recovered/Not Resolved]

NARRATIVE: CASE EVENT DATE: 2014
